FAERS Safety Report 9835111 (Version 1)
Quarter: 2014Q1

REPORT INFORMATION
  Report Type: Spontaneous
  Country: US (occurrence: US)
  Receive Date: 20140122
  Receipt Date: 20140122
  Transmission Date: 20141002
  Serious: No
  Sender: FDA-Public Use
  Company Number: US-BRISTOL-MYERS SQUIBB COMPANY-19794478

PATIENT
  Age: 75 Year
  Sex: Male

DRUGS (5)
  1. ELIQUIS [Suspect]
     Dosage: STARTED ELIQUIS IN MAY OR JUNE 2013
     Dates: start: 2013
  2. PRAVASTATINE [Concomitant]
  3. CELEXA [Concomitant]
  4. TOPROL [Concomitant]
  5. DOXYCYCLINE HCL [Concomitant]

REACTIONS (1)
  - Back pain [Unknown]
